FAERS Safety Report 5136190-5 (Version None)
Quarter: 2006Q4

REPORT INFORMATION
  Report Type: 
  Country: None (occurrence: None)
  Receive Date: 20061027
  Receipt Date: 20061013
  Transmission Date: 20070319
  Serious: Yes (Other)
  Sender: FDA-Public Use
  Company Number: PHBS2006KR16159

PATIENT
  Age: 31 Year
  Sex: Female

DRUGS (2)
  1. GLEEVEC [Suspect]
     Indication: CHRONIC MYELOID LEUKAEMIA
     Dosage: 3 DF/D
     Route: 048
     Dates: start: 20060821, end: 20060921
  2. GLEEVEC [Suspect]
     Dosage: 2 DF/D
     Route: 048
     Dates: start: 20061013

REACTIONS (7)
  - ABDOMINAL PAIN UPPER [None]
  - BACK PAIN [None]
  - BEHCET'S SYNDROME [None]
  - EYE DISCHARGE [None]
  - MENORRHAGIA [None]
  - MYALGIA [None]
  - NAUSEA [None]
